FAERS Safety Report 19427320 (Version 1)
Quarter: 2021Q2

REPORT INFORMATION
  Report Type: Spontaneous
  Country: US (occurrence: US)
  Receive Date: 20210616
  Receipt Date: 20210616
  Transmission Date: 20210717
  Serious: Yes (Hospitalization)
  Sender: FDA-Public Use
  Company Number: None

PATIENT
  Age: 67 Year
  Sex: Male

DRUGS (1)
  1. TETRABENAZINE 12.5 MG SUN PHARMACEUTICALS [Suspect]
     Active Substance: TETRABENAZINE
     Indication: CHOREA
     Dosage: ? ON HOLD
     Route: 048
     Dates: start: 20170908

REACTIONS (1)
  - Pneumonia [None]

NARRATIVE: CASE EVENT DATE: 20210602
